FAERS Safety Report 8869019 (Version 1)
Quarter: 2012Q4

REPORT INFORMATION
  Report Type: 
  Country: US (occurrence: US)
  Receive Date: 20121023
  Receipt Date: 20121023
  Transmission Date: 20130627
  Serious: No
  Sender: FDA-Public Use
  Company Number: US-AMGEN-USASP2012054936

PATIENT
  Age: 45 Year
  Sex: Female

DRUGS (3)
  1. ENBREL [Suspect]
     Indication: PRODUCT USED FOR UNKNOWN INDICATION
     Dosage: 50 mg, qwk
     Route: 058
     Dates: start: 20070502
  2. CIPRO                              /00697201/ [Concomitant]
     Dosage: 500 mg x7 days
  3. AMOXICILLIN [Concomitant]
     Dosage: UNK
     Dates: start: 20120823

REACTIONS (2)
  - Kidney infection [Unknown]
  - Dental operation [Unknown]
